FAERS Safety Report 4792413-3 (Version None)
Quarter: 2005Q4

REPORT INFORMATION
  Report Type: 
  Country: None (occurrence: None)
  Receive Date: 20051010
  Receipt Date: 20050621
  Transmission Date: 20060501
  Serious: Yes (Death, Other)
  Sender: FDA-Public Use
  Company Number: PHBS2005BE09008

PATIENT
  Age: 74 Year
  Sex: Female
  Weight: 65 kg

DRUGS (9)
  1. AREDIA [Suspect]
     Indication: METASTASES TO BONE
     Dosage: UNK, UNK
     Route: 042
     Dates: start: 20000920, end: 20020828
  2. ZOMETA [Suspect]
     Indication: METASTASES TO BONE
     Dosage: 4 MG EVERY 4 - 8 WEEKS
     Route: 042
     Dates: start: 20021017, end: 20050110
  3. THALIDOMIDE [Concomitant]
     Dosage: UNK, UNK
     Route: 065
     Dates: start: 19990101, end: 20050110
  4. DURAGESIC-100 [Concomitant]
     Route: 065
  5. THYROXINE [Concomitant]
     Route: 065
  6. SERTRALINE HCL [Concomitant]
     Route: 065
  7. DAFLON [Concomitant]
     Route: 065
  8. INTERFERON [Concomitant]
     Dates: start: 19940101, end: 20000101
  9. DEXAMETHASONE [Concomitant]
     Dates: start: 20050101

REACTIONS (15)
  - BLOOD IMMUNOGLOBULIN G INCREASED [None]
  - BONE DEBRIDEMENT [None]
  - BONE DISORDER [None]
  - DENTAL PROSTHESIS USER [None]
  - FISTULA [None]
  - GINGIVAL ABSCESS [None]
  - HYPERBARIC OXYGEN THERAPY [None]
  - LEUKOPENIA [None]
  - MALIGNANT NEOPLASM PROGRESSION [None]
  - MANDIBULECTOMY [None]
  - MONOCLONAL IMMUNOGLOBULIN PRESENT [None]
  - OPEN WOUND [None]
  - OSTEITIS [None]
  - OSTEOMYELITIS [None]
  - OSTEONECROSIS [None]
